FAERS Safety Report 10992408 (Version 4)
Quarter: 2016Q1

REPORT INFORMATION
  Report Type: Report from Study
  Country: BR (occurrence: BR)
  Receive Date: 20150406
  Receipt Date: 20160301
  Transmission Date: 20160525
  Serious: Yes (Hospitalization, Other)
  Sender: FDA-Public Use
  Company Number: PHHY2015BR040316

PATIENT
  Age: 58 Year
  Sex: Female
  Weight: 45 kg

DRUGS (6)
  1. VASOPRIL//ENALAPRIL MALEATE [Concomitant]
     Indication: HYPERTENSION
     Dosage: 1 DF, QD (10 YEARS AGO)
     Route: 048
  2. PROPRANOLOL [Concomitant]
     Active Substance: PROPRANOLOL\PROPRANOLOL HYDROCHLORIDE
     Indication: HYPERTENSION
     Dosage: 2 DF, QD (10 YEARS AGO)
     Route: 048
  3. ACLASTA [Suspect]
     Active Substance: ZOLEDRONIC ACID
     Indication: OSTEOPOROSIS
     Dosage: 1 DF (5 MG), Q12MO
     Route: 042
  4. HYDROCHLOROTHIAZIDE. [Concomitant]
     Active Substance: HYDROCHLOROTHIAZIDE
     Indication: HYPERTENSION
     Dosage: 1 DF, QD (10 YEARS AGO)
     Route: 048
  5. GLIFAGE [Concomitant]
     Active Substance: METFORMIN HYDROCHLORIDE
     Indication: DIABETES MELLITUS
     Dosage: 1 DF, QD (2 YEARS AGO)
     Route: 048
  6. TORLOS [Concomitant]
     Indication: HYPERTENSION
     Dosage: 1 DF, QD (10 YEARS AGO)
     Route: 048

REACTIONS (7)
  - Spinal cord disorder [Unknown]
  - Multiple fractures [Recovered/Resolved]
  - Device failure [Recovering/Resolving]
  - Lower limb fracture [Recovering/Resolving]
  - Blood glucose increased [Recovering/Resolving]
  - Osteoporotic fracture [Recovering/Resolving]
  - Hypokinesia [Recovering/Resolving]

NARRATIVE: CASE EVENT DATE: 201409
